FAERS Safety Report 7451005-8 (Version None)
Quarter: 2011Q2

REPORT INFORMATION
  Report Type: 
  Country: None (occurrence: None)
  Receive Date: 20110429
  Receipt Date: 20110429
  Transmission Date: 20111010
  Serious: No
  Sender: FDA-Public Use
  Company Number: None

PATIENT
  Sex: Female
  Weight: 59.09 kg

DRUGS (3)
  1. CISPLATIN [Suspect]
     Dosage: 79 MG
  2. DOXORUBICIN HCL [Suspect]
     Dosage: 71 MG
  3. PACLITAXEL [Suspect]
     Dosage: 141 MG

REACTIONS (1)
  - NEUTROPENIA [None]
